FAERS Safety Report 10072394 (Version 1)
Quarter: 2014Q2

REPORT INFORMATION
  Report Type: Spontaneous
  Country: US (occurrence: US)
  Receive Date: 20140411
  Receipt Date: 20140411
  Transmission Date: 20141212
  Serious: Yes (Hospitalization)
  Sender: FDA-Public Use
  Company Number: US-ELI_LILLY_AND_COMPANY-US201404002444

PATIENT
  Age: 9 Year
  Sex: Female

DRUGS (1)
  1. HUMATROPE [Suspect]
     Indication: DWARFISM
     Dosage: UNK UNK, UNKNOWN
     Route: 065
     Dates: start: 201202

REACTIONS (3)
  - Convulsion [Unknown]
  - Muscle twitching [Unknown]
  - Hyperhidrosis [Unknown]
